FAERS Safety Report 5387651-5 (Version None)
Quarter: 2007Q3

REPORT INFORMATION
  Report Type: 
  Country: None (occurrence: None)
  Receive Date: 20070712
  Receipt Date: 20070702
  Transmission Date: 20080115
  Serious: Yes (Hospitalization)
  Sender: FDA-Public Use
  Company Number: 2007JP002762

PATIENT
  Age: 85 Year
  Sex: Female
  Weight: 37.9 kg

DRUGS (5)
  1. TACROLIMUS [Suspect]
     Indication: RHEUMATOID ARTHRITIS
     Dosage: 1.5 MG, UID/QD, ORAL
     Route: 048
     Dates: start: 20060427
  2. METHYLPREDNISOLONE [Concomitant]
  3. MOBIC [Concomitant]
  4. ISCOTIN (ISONIAZID) TABLET [Concomitant]
  5. SELBEX (TEPRENONE) CAPSULE [Concomitant]

REACTIONS (7)
  - BETA 2 MICROGLOBULIN URINE INCREASED [None]
  - BLOOD ALBUMIN DECREASED [None]
  - BLOOD URIC ACID DECREASED [None]
  - FALL [None]
  - FEMUR FRACTURE [None]
  - HAEMATOCRIT DECREASED [None]
  - MYOCARDIAL INFARCTION [None]
